FAERS Safety Report 8556043-X (Version None)
Quarter: 2012Q3

REPORT INFORMATION
  Report Type: 
  Country: None (occurrence: None)
  Receive Date: 20120719
  Receipt Date: 20120704
  Transmission Date: 20120928
  Serious: Yes (Hospitalization, Other)
  Sender: FDA-Public Use
  Company Number: MCA-N-12-082

PATIENT
  Age: 27 Year
  Sex: Male

DRUGS (3)
  1. BENZTROPINE MESYLATE [Concomitant]
  2. BUPROPION HCL [Concomitant]
  3. OLANZAPINE [Suspect]
     Indication: BIPOLAR DISORDER

REACTIONS (5)
  - COLITIS ISCHAEMIC [None]
  - ABDOMINAL TENDERNESS [None]
  - LEUKOCYTOSIS [None]
  - HAEMATOCHEZIA [None]
  - PYREXIA [None]
